FAERS Safety Report 4621264-5 (Version None)
Quarter: 2005Q1

REPORT INFORMATION
  Report Type: 
  Country: None (occurrence: None)
  Receive Date: 20050329
  Receipt Date: 20050106
  Transmission Date: 20050727
  Serious: Yes (Other)
  Sender: FDA-Public Use
  Company Number: PHNU2005DE00476

PATIENT
  Age: 54 Year
  Sex: Female
  Weight: 78 kg

DRUGS (2)
  1. ESTRADOT [Suspect]
     Indication: OESTROGEN DEFICIENCY
     Dosage: 1 DF, UNK
     Route: 062
     Dates: start: 20041217, end: 20041220
  2. ESTRADOT [Suspect]
     Dosage: 1 DF, UNK
     Dates: start: 20041220, end: 20041223

REACTIONS (6)
  - APPLICATION SITE ERYTHEMA [None]
  - APPLICATION SITE INFLAMMATION [None]
  - APPLICATION SITE NECROSIS [None]
  - APPLICATION SITE ULCER [None]
  - GANGRENE [None]
  - SKIN LESION [None]
